FAERS Safety Report 10028009 (Version 1)
Quarter: 2014Q1

REPORT INFORMATION
  Report Type: Spontaneous
  Country: IT (occurrence: IT)
  Receive Date: 20140321
  Receipt Date: 20140321
  Transmission Date: 20141002
  Serious: Yes (Hospitalization)
  Sender: FDA-Public Use
  Company Number: IT-SA-2014SA033849

PATIENT
  Age: 60 Year
  Sex: Male
  Weight: 82 kg

DRUGS (8)
  1. LASIX [Suspect]
     Indication: POLYURIA
     Route: 048
     Dates: start: 200804
  2. TRIATEC [Suspect]
     Indication: CARDIAC DISORDER
     Route: 048
     Dates: start: 200804
  3. TORVAST [Suspect]
     Indication: CARDIAC DISORDER
     Route: 048
     Dates: start: 200804
  4. CARDIOASPIRIN [Suspect]
     Indication: CARDIAC DISORDER
     Route: 048
     Dates: start: 200804
  5. BENTELAN [Suspect]
     Indication: PREMEDICATION
     Dosage: DOSE- 1 DF FOUR DAYS BEFORE THE INFUSION (BIMONTHLY)
     Route: 048
     Dates: start: 200804
  6. ZIRTEC [Suspect]
     Indication: PREMEDICATION
     Dosage: DOSE- 1 TABLET/DAY, THREE DAYS BEFORE THE INFUSION (BIMONTHLY)
     Route: 048
     Dates: start: 201401
  7. ISOPTIN [Suspect]
     Indication: HYPERTENSION
     Route: 048
     Dates: start: 200804
  8. PRADAXA [Suspect]
     Indication: PRODUCT USED FOR UNKNOWN INDICATION
     Route: 065
     Dates: start: 201401

REACTIONS (2)
  - Chest pain [Recovering/Resolving]
  - Dyspnoea [Recovering/Resolving]
